FAERS Safety Report 11807245 (Version 2)
Quarter: 2015Q4

REPORT INFORMATION
  Report Type: Spontaneous
  Country: CA (occurrence: CA)
  Receive Date: 20151207
  Receipt Date: 20151211
  Transmission Date: 20160305
  Serious: Yes (Other)
  Sender: FDA-Public Use
  Company Number: CA-MEDA-2015120009

PATIENT
  Age: 71 Year
  Sex: Male

DRUGS (23)
  1. NABILONE [Suspect]
     Active Substance: NABILONE
     Indication: DISINHIBITION
  2. NABILONE [Suspect]
     Active Substance: NABILONE
     Indication: DISINHIBITION
  3. NABILONE [Suspect]
     Active Substance: NABILONE
     Indication: BEHAVIOURAL AND PSYCHIATRIC SYMPTOMS OF DEMENTIA
  4. ARIPIPRAZOLE. [Concomitant]
     Active Substance: ARIPIPRAZOLE
     Indication: BEHAVIOURAL AND PSYCHIATRIC SYMPTOMS OF DEMENTIA
  5. NABILONE [Suspect]
     Active Substance: NABILONE
     Indication: BEHAVIOURAL AND PSYCHIATRIC SYMPTOMS OF DEMENTIA
  6. NABILONE [Suspect]
     Active Substance: NABILONE
     Indication: BEHAVIOURAL AND PSYCHIATRIC SYMPTOMS OF DEMENTIA
  7. RISPERIDONE. [Concomitant]
     Active Substance: RISPERIDONE
     Indication: AGGRESSION
  8. RISPERIDONE. [Concomitant]
     Active Substance: RISPERIDONE
     Indication: BEHAVIOURAL AND PSYCHIATRIC SYMPTOMS OF DEMENTIA
  9. SERTRALINE [Concomitant]
     Active Substance: SERTRALINE HYDROCHLORIDE
     Indication: BEHAVIOURAL AND PSYCHIATRIC SYMPTOMS OF DEMENTIA
  10. SERTRALINE [Concomitant]
     Active Substance: SERTRALINE HYDROCHLORIDE
     Indication: DISINHIBITION
  11. DIVALPROEX [Concomitant]
     Active Substance: DIVALPROEX SODIUM
     Indication: BEHAVIOURAL AND PSYCHIATRIC SYMPTOMS OF DEMENTIA
  12. NABILONE [Suspect]
     Active Substance: NABILONE
     Indication: DISINHIBITION
  13. NABILONE [Suspect]
     Active Substance: NABILONE
     Indication: DISINHIBITION
  14. TRAZODONE [Concomitant]
     Active Substance: TRAZODONE HYDROCHLORIDE
     Indication: BEHAVIOURAL AND PSYCHIATRIC SYMPTOMS OF DEMENTIA
  15. NABILONE [Suspect]
     Active Substance: NABILONE
     Indication: DISINHIBITION
  16. NABILONE [Suspect]
     Active Substance: NABILONE
     Indication: BEHAVIOURAL AND PSYCHIATRIC SYMPTOMS OF DEMENTIA
  17. DIVALPROEX [Concomitant]
     Active Substance: DIVALPROEX SODIUM
     Indication: DISINHIBITION
  18. ARIPIPRAZOLE. [Concomitant]
     Active Substance: ARIPIPRAZOLE
     Indication: DISINHIBITION
  19. NABILONE [Suspect]
     Active Substance: NABILONE
     Indication: BEHAVIOURAL AND PSYCHIATRIC SYMPTOMS OF DEMENTIA
  20. LORAZEPAM. [Concomitant]
     Active Substance: LORAZEPAM
     Indication: AGITATION
  21. NABILONE [Suspect]
     Active Substance: NABILONE
     Indication: DISINHIBITION
  22. NABILONE [Suspect]
     Active Substance: NABILONE
     Indication: BEHAVIOURAL AND PSYCHIATRIC SYMPTOMS OF DEMENTIA
  23. TRAZODONE [Concomitant]
     Active Substance: TRAZODONE HYDROCHLORIDE
     Indication: DISINHIBITION

REACTIONS (4)
  - Delirium [Recovered/Resolved]
  - Lethargy [Recovered/Resolved]
  - Sedation [Recovered/Resolved]
  - Off label use [Unknown]
